FAERS Safety Report 7571513-9 (Version None)
Quarter: 2011Q2

REPORT INFORMATION
  Report Type: 
  Country: None (occurrence: None)
  Receive Date: 20110624
  Receipt Date: 20110610
  Transmission Date: 20111010
  Serious: Yes (Hospitalization)
  Sender: FDA-Public Use
  Company Number: JP-JNJFOC-20110509722

PATIENT
  Sex: Female
  Weight: 42 kg

DRUGS (15)
  1. REMICADE [Suspect]
     Indication: BEHCET'S SYNDROME
     Route: 042
     Dates: start: 20100903
  2. REMICADE [Suspect]
     Route: 042
     Dates: start: 20101001
  3. RHEUMATREX [Suspect]
     Route: 048
     Dates: start: 20091101
  4. OMEPRAZOLE [Concomitant]
     Indication: GASTROINTESTINAL DISORDER THERAPY
     Route: 048
     Dates: start: 20090223
  5. PATANOL [Concomitant]
     Indication: CONJUNCTIVITIS ALLERGIC
     Route: 031
  6. REMICADE [Suspect]
     Route: 042
     Dates: start: 20100903
  7. REMICADE [Suspect]
     Route: 042
     Dates: start: 20100821
  8. REMICADE [Suspect]
     Route: 042
     Dates: start: 20101001
  9. NEORAL [Suspect]
     Indication: PSORIATIC ARTHROPATHY
     Route: 048
     Dates: start: 20100531
  10. RHEUMATREX [Suspect]
     Indication: PSORIATIC ARTHROPATHY
     Route: 048
     Dates: start: 20100405
  11. FOLIC ACID [Concomitant]
     Indication: FOLATE DEFICIENCY
     Route: 048
     Dates: start: 20100405
  12. REMICADE [Suspect]
     Indication: PSORIATIC ARTHROPATHY
     Route: 042
     Dates: start: 20100821
  13. NEORAL [Suspect]
     Route: 048
     Dates: start: 20091101
  14. BETAMETHASONE [Suspect]
     Indication: BEHCET'S SYNDROME
     Route: 048
     Dates: start: 20090223
  15. FLUMETHOLON [Concomitant]
     Indication: ULCERATIVE KERATITIS
     Route: 031

REACTIONS (1)
  - PNEUMONIA CRYPTOCOCCAL [None]
